FAERS Safety Report 7926598-4 (Version None)
Quarter: 2011Q4

REPORT INFORMATION
  Report Type: 
  Country: None (occurrence: None)
  Receive Date: 20111118
  Receipt Date: 20090901
  Transmission Date: 20120403
  Serious: No
  Sender: FDA-Public Use
  Company Number: 2009BI028264

PATIENT
  Sex: Female

DRUGS (1)
  1. TYSABRI [Suspect]
     Indication: MULTIPLE SCLEROSIS
     Route: 042
     Dates: start: 20090304

REACTIONS (13)
  - PAIN [None]
  - BONE PAIN [None]
  - FATIGUE [None]
  - INFLUENZA [None]
  - MEMORY IMPAIRMENT [None]
  - HEADACHE [None]
  - MOBILITY DECREASED [None]
  - DIZZINESS [None]
  - COUGH [None]
  - BALANCE DISORDER [None]
  - EYE PAIN [None]
  - EYE DISCHARGE [None]
  - NAUSEA [None]
